FAERS Safety Report 11442273 (Version 1)
Quarter: 2015Q3

REPORT INFORMATION
  Report Type: Spontaneous
  Country: GB (occurrence: GB)
  Receive Date: 20150901
  Receipt Date: 20150901
  Transmission Date: 20151125
  Serious: Yes (Disabling)
  Sender: FDA-Public Use
  Company Number: GB-BANPHARM-20154151

PATIENT
  Age: 56 Year
  Sex: Male
  Weight: 127 kg

DRUGS (6)
  1. PARACETAMOL [Concomitant]
     Active Substance: ACETAMINOPHEN
     Dates: start: 20140617
  2. LANSOPRAZOLE. [Concomitant]
     Active Substance: LANSOPRAZOLE
     Dosage: 1 DF, QD,
     Dates: start: 20140617
  3. IBUPROFEN UNKNOWN PRODUCT [Suspect]
     Active Substance: IBUPROFEN
     Dates: start: 20150722
  4. IBUPROFEN UNKNOWN PRODUCT [Suspect]
     Active Substance: IBUPROFEN
     Route: 048
     Dates: start: 20150807, end: 20150807
  5. DICLOFENAC SODIUM. [Concomitant]
     Active Substance: DICLOFENAC SODIUM
     Dosage: 1 DF, TID,
     Dates: start: 20140805, end: 20150722
  6. TRAMADOL. [Concomitant]
     Active Substance: TRAMADOL
     Dosage: PRN,
     Dates: start: 20140617

REACTIONS (1)
  - Nausea [Unknown]

NARRATIVE: CASE EVENT DATE: 20150807
